FAERS Safety Report 10348112 (Version 3)
Quarter: 2014Q3

REPORT INFORMATION
  Report Type: Report from Study
  Country: IN (occurrence: IN)
  Receive Date: 20140729
  Receipt Date: 20140901
  Transmission Date: 20150326
  Serious: Yes (Hospitalization)
  Sender: FDA-Public Use
  Company Number: PHHO2014IN009553

PATIENT

DRUGS (12)
  1. MABTHERA [Suspect]
     Active Substance: RITUXIMAB
     Indication: NON-HODGKIN^S LYMPHOMA
     Dosage: CODE NOT BROKEN
     Route: 042
     Dates: start: 20140213
  2. BLINDED NO TREATMENT RECEIVED [Suspect]
     Active Substance: UNSPECIFIED INGREDIENT
     Indication: NON-HODGKIN^S LYMPHOMA
     Dosage: CODE NOT BROKEN
     Route: 042
     Dates: start: 20140213
  3. GRANISETRON [Concomitant]
     Active Substance: GRANISETRON
     Indication: PROPHYLACTIC CHEMOTHERAPY
     Dosage: 3 MG, OD
     Route: 042
     Dates: start: 20140213
  4. DIPHENHYDRAMINE [Concomitant]
     Active Substance: DIPHENHYDRAMINE
     Indication: PROPHYLACTIC CHEMOTHERAPY
     Dosage: 25 MG, OD
     Route: 048
     Dates: start: 20140213
  5. RITUXAN [Suspect]
     Active Substance: RITUXIMAB
     Indication: NON-HODGKIN^S LYMPHOMA
     Dosage: CODE NOT BROKEN
     Route: 042
     Dates: start: 20140213
  6. VINCRISTINE [Suspect]
     Active Substance: VINCRISTINE
     Indication: CHEMOTHERAPY
     Dosage: 2 MG, ONCE IN 3 WEEK
     Route: 042
     Dates: start: 20140213
  7. WYSOLONE [Concomitant]
     Indication: PROPHYLACTIC CHEMOTHERAPY
     Dosage: 100 MG, OD
     Route: 048
     Dates: start: 20140213
  8. PREDNISONE. [Suspect]
     Active Substance: PREDNISONE
     Indication: CHEMOTHERAPY
     Dosage: 100 MG, OD FOR DAY 1 TO DAY 5 IN EACH CYCLE
     Route: 048
     Dates: start: 20140213
  9. BECOSULES [Concomitant]
     Indication: PROPHYLACTIC CHEMOTHERAPY
     Dosage: OD
     Route: 048
     Dates: start: 20140213
  10. RANITIDINE [Concomitant]
     Active Substance: RANITIDINE\RANITIDINE HYDROCHLORIDE
     Indication: PROPHYLACTIC CHEMOTHERAPY
     Dosage: 50 MG, OD
     Route: 042
     Dates: start: 20140213
  11. CYCLOPHOSPHAMIDE. [Suspect]
     Active Substance: CYCLOPHOSPHAMIDE
     Indication: CHEMOTHERAPY
     Dosage: 1300 MG, ONCE IN 3 WEEK
     Route: 042
     Dates: start: 20140213
  12. PARACETAMOL [Concomitant]
     Active Substance: ACETAMINOPHEN
     Indication: PROPHYLACTIC CHEMOTHERAPY
     Dosage: 500 MG, OD
     Route: 048
     Dates: start: 20140213

REACTIONS (2)
  - Sepsis [Recovered/Resolved with Sequelae]
  - Acute respiratory distress syndrome [Recovered/Resolved]

NARRATIVE: CASE EVENT DATE: 20140707
